FAERS Safety Report 15325812 (Version 5)
Quarter: 2018Q3

REPORT INFORMATION
  Report Type: Report from Study
  Country: FI (occurrence: FI)
  Receive Date: 20180828
  Receipt Date: 20180927
  Transmission Date: 20181010
  Serious: Yes (Hospitalization)
  Sender: FDA-Public Use
  Company Number: PHHO2018FI009575

PATIENT
  Age: 29 Year
  Sex: Male
  Weight: 86 kg

DRUGS (8)
  1. IDARUBICIN COMP_IDA+ [Suspect]
     Active Substance: IDARUBICIN
     Indication: ACUTE MYELOID LEUKAEMIA
     Dosage: NO TREATMENT
     Route: 042
  2. CYTARABINE. [Suspect]
     Active Substance: CYTARABINE
     Indication: ACUTE MYELOID LEUKAEMIA
     Dosage: NO TREATMENT
     Route: 042
  3. CGP 41251 [Suspect]
     Active Substance: MIDOSTAURIN
     Indication: ACUTE MYELOID LEUKAEMIA
     Dosage: 50 MG, BID
     Route: 048
     Dates: start: 20180627
  4. CGP 41251 [Suspect]
     Active Substance: MIDOSTAURIN
     Dosage: 50 MG, BID
     Route: 048
     Dates: start: 20180726
  5. CGP 41251 [Suspect]
     Active Substance: MIDOSTAURIN
     Dosage: 50 MG, BID
     Route: 048
     Dates: start: 20180802
  6. CYTARABINE. [Suspect]
     Active Substance: CYTARABINE
     Dosage: 200 MG/M2, CONT
     Route: 042
     Dates: start: 20180719
  7. IDARUBICIN COMP_IDA+ [Suspect]
     Active Substance: IDARUBICIN
     Dosage: 12 MG/M2, QD
     Route: 042
     Dates: start: 20180719
  8. VALACICLOVIR [Concomitant]
     Active Substance: VALACYCLOVIR HYDROCHLORIDE
     Indication: RASH MACULO-PAPULAR
     Dosage: 1000 MG, TID
     Route: 048
     Dates: start: 20180703, end: 20180715

REACTIONS (2)
  - Ileus [Recovered/Resolved]
  - Enteritis [Recovered/Resolved]

NARRATIVE: CASE EVENT DATE: 20180716
